FAERS Safety Report 11947306 (Version 1)
Quarter: 2016Q1

REPORT INFORMATION
  Report Type: Spontaneous
  Country: US (occurrence: US)
  Receive Date: 20160125
  Receipt Date: 20160125
  Transmission Date: 20160526
  Serious: No
  Sender: FDA-Public Use
  Company Number: US-JNJFOC-20160108281

PATIENT
  Age: 35 Year
  Sex: Male
  Weight: 92.99 kg

DRUGS (4)
  1. MENS ROGAINE EXTRA STRENGTH [Suspect]
     Active Substance: MINOXIDIL
     Indication: ALOPECIA
     Dosage: 1/2 CAPFUL, 2X PER DAY.
     Route: 061
     Dates: end: 20160111
  2. PROPECIA [Concomitant]
     Active Substance: FINASTERIDE
     Indication: ALOPECIA
     Dosage: FROM YEARS.
     Route: 065
  3. MENS ROGAINE EXTRA STRENGTH [Suspect]
     Active Substance: MINOXIDIL
     Route: 061
  4. NUVIGIL [Concomitant]
     Active Substance: ARMODAFINIL
     Indication: POOR QUALITY SLEEP
     Route: 065

REACTIONS (1)
  - Alopecia [Not Recovered/Not Resolved]
